FAERS Safety Report 24415222 (Version 1)
Quarter: 2024Q4

REPORT INFORMATION
  Report Type: Spontaneous
  Country: US (occurrence: US)
  Receive Date: 20241009
  Receipt Date: 20241009
  Transmission Date: 20250115
  Serious: Yes (Hospitalization, Other)
  Sender: APOTEX
  Company Number: US-APOTEX-2024AP011704

PATIENT
  Age: 61 Year
  Sex: Male

DRUGS (2)
  1. ACETAMINOPHEN [Suspect]
     Active Substance: ACETAMINOPHEN
     Indication: Product used for unknown indication
     Dosage: UNK
     Route: 065
  2. ETHYLENE GLYCOL [Suspect]
     Active Substance: ETHYLENE GLYCOL
     Indication: Product used for unknown indication
     Dosage: UNK
     Route: 065

REACTIONS (12)
  - Toxicity to various agents [Unknown]
  - Chest discomfort [Unknown]
  - Dysarthria [Unknown]
  - Confusional state [Unknown]
  - Fall [Unknown]
  - Mental status changes [Recovering/Resolving]
  - Respiratory distress [Unknown]
  - Hypoxia [Unknown]
  - Metabolic acidosis [Recovered/Resolved]
  - Hyperosmolar state [Recovered/Resolved]
  - Acute kidney injury [Recovering/Resolving]
  - Exposure to toxic agent [Unknown]
